FAERS Safety Report 23451940 (Version 1)
Quarter: 2024Q1

REPORT INFORMATION
  Report Type: Spontaneous
  Country: US (occurrence: None)
  Receive Date: 20240127
  Receipt Date: 20240127
  Transmission Date: 20240410
  Serious: Yes (Life-Threatening, Hospitalization, Disabling, Other)
  Sender: FDA-Public Use
  Company Number: None

PATIENT
  Age: 38 Year
  Sex: Female
  Weight: 72 kg

DRUGS (3)
  1. PAROXETINE [Suspect]
     Active Substance: PAROXETINE
     Indication: Depression
  2. PAROXETINE [Suspect]
     Active Substance: PAROXETINE
     Indication: Anxiety
  3. Paroxetine 30 mg daily [Concomitant]

REACTIONS (18)
  - Product administered to patient of inappropriate age [None]
  - Withdrawal syndrome [None]
  - Suicide attempt [None]
  - Psychotic disorder [None]
  - Anger [None]
  - Homicidal ideation [None]
  - Partner stress [None]
  - Loss of employment [None]
  - Homeless [None]
  - Judgement impaired [None]
  - Major depression [None]
  - Electrolyte imbalance [None]
  - Vertigo [None]
  - Social fear [None]
  - Memory impairment [None]
  - Product dose omission in error [None]
  - Quality of life decreased [None]
  - Product use issue [None]
